FAERS Safety Report 20154691 (Version 1)
Quarter: 2021Q4

REPORT INFORMATION
  Report Type: Spontaneous
  Country: CN (occurrence: CN)
  Receive Date: 20211207
  Receipt Date: 20211207
  Transmission Date: 20220304
  Serious: Yes (Hospitalization, Other)
  Sender: FDA-Public Use
  Company Number: CN-ABBVIE-21K-035-4182564-00

PATIENT
  Age: 5 Year

DRUGS (4)
  1. VALPROATE SODIUM [Suspect]
     Active Substance: VALPROATE SODIUM
     Indication: Epilepsy
     Dosage: 12G,300 ML
     Route: 065
     Dates: start: 20201001
  2. VALPROATE SODIUM [Suspect]
     Active Substance: VALPROATE SODIUM
     Dosage: DOSE DECREASED
     Route: 065
  3. KEPPRA [Concomitant]
     Active Substance: LEVETIRACETAM
     Indication: Epilepsy
     Dates: start: 20201001
  4. KEPPRA [Concomitant]
     Active Substance: LEVETIRACETAM
     Dosage: INCREASED
     Dates: start: 20201019

REACTIONS (6)
  - Dysstasia [Unknown]
  - Lethargy [Unknown]
  - Asthenia [Unknown]
  - Pyrexia [Not Recovered/Not Resolved]
  - Somnolence [Unknown]
  - Epilepsy [Unknown]

NARRATIVE: CASE EVENT DATE: 20201001
